FAERS Safety Report 7443180-6 (Version None)
Quarter: 2011Q2

REPORT INFORMATION
  Report Type: 
  Country: None (occurrence: None)
  Receive Date: 20110428
  Receipt Date: 20110422
  Transmission Date: 20111010
  Serious: Yes (Other)
  Sender: FDA-Public Use
  Company Number: A0924796A

PATIENT
  Age: 63 Year
  Sex: Female

DRUGS (10)
  1. DABIGATRAN [Suspect]
     Indication: PRODUCT USED FOR UNKNOWN INDICATION
     Route: 065
     Dates: start: 20110309, end: 20110323
  2. AZITHROMYCIN [Suspect]
     Indication: PNEUMONIA
     Route: 065
     Dates: start: 20110309
  3. NEXIUM [Concomitant]
  4. AMIODARONE [Concomitant]
  5. MULTAQ [Suspect]
     Indication: ATRIAL FIBRILLATION
     Dosage: 400MG TWICE PER DAY
     Route: 048
     Dates: start: 20110309, end: 20110323
  6. ZETIA [Concomitant]
  7. CARDIZEM [Suspect]
     Indication: PRODUCT USED FOR UNKNOWN INDICATION
     Route: 065
     Dates: start: 20110309
  8. CRESTOR [Suspect]
     Indication: PRODUCT USED FOR UNKNOWN INDICATION
     Route: 065
     Dates: end: 20110323
  9. LASIX [Suspect]
     Indication: PRODUCT USED FOR UNKNOWN INDICATION
     Route: 065
     Dates: start: 20110309
  10. CEFTIN [Suspect]
     Indication: PNEUMONIA
     Route: 065
     Dates: start: 20110309

REACTIONS (8)
  - DIZZINESS [None]
  - BLOOD ALKALINE PHOSPHATASE INCREASED [None]
  - ALANINE AMINOTRANSFERASE INCREASED [None]
  - ASPARTATE AMINOTRANSFERASE INCREASED [None]
  - HEPATOCELLULAR INJURY [None]
  - DIARRHOEA [None]
  - NAUSEA [None]
  - FATIGUE [None]
